FAERS Safety Report 9825324 (Version 1)
Quarter: 2013Q4

REPORT INFORMATION
  Report Type: Spontaneous
  Country: US (occurrence: None)
  Receive Date: 20131028
  Receipt Date: 20131028
  Transmission Date: 20140711
  Serious: Yes (Other)
  Sender: FDA-Public Use
  Company Number: 2013US001996

PATIENT
  Age: 63 Year
  Sex: Female
  Weight: 73 kg

DRUGS (7)
  1. ICLUSIG [Suspect]
     Route: 048
     Dates: start: 20130704
  2. OXYCODONE (OXYCODONE) [Concomitant]
  3. TOPROL (METOPROLOL SUCCINATE) [Concomitant]
  4. HYDROCHLOROTHIAZIDE (HYDROCHLOROTHIAZIDE) [Concomitant]
  5. MULTIVITAMIN (VITAMINS NOS) [Concomitant]
  6. ASPIIRIN (ASPIRIN) [Concomitant]
  7. ZANTAC (RANITIDINE HYDROCHLORIDE) [Concomitant]

REACTIONS (3)
  - Chest pain [None]
  - Nausea [None]
  - Back pain [None]
